FAERS Safety Report 6370873-4 (Version None)
Quarter: 2009Q3

REPORT INFORMATION
  Report Type: 
  Country: None (occurrence: None)
  Receive Date: 20090923
  Receipt Date: 20070511
  Transmission Date: 20100115
  Serious: Yes (Hospitalization)
  Sender: FDA-Public Use
  Company Number: US-ASTRAZENECA-2006UW23496

PATIENT
  Age: 20079 Day
  Sex: Female
  Weight: 79.4 kg

DRUGS (19)
  1. SEROQUEL [Suspect]
     Indication: MENTAL DISORDER
     Dosage: 25 - 600 MG (FLUCTUATING)
     Route: 048
     Dates: start: 19990408
  2. SEROQUEL [Suspect]
     Route: 048
     Dates: end: 20060501
  3. ABILIFY [Concomitant]
     Dates: start: 20050101
  4. CLOZARIL [Concomitant]
     Dates: start: 19990101
  5. RISPERDAL [Concomitant]
  6. STELAZINE [Concomitant]
  7. ZYPREXA [Concomitant]
  8. CLONAZEPAM [Concomitant]
     Dosage: 0.5 MG, ONE-HALF AT NIGHT
     Route: 048
     Dates: start: 19990427
  9. LITHIUM [Concomitant]
     Dosage: 200, 300, 600 MG (FLUCTUATING)
     Route: 048
     Dates: start: 20000908
  10. CLARITIN [Concomitant]
     Route: 048
     Dates: start: 20000908
  11. LIPITOR [Concomitant]
     Route: 048
     Dates: start: 20030904
  12. DETROL LA [Concomitant]
     Route: 048
     Dates: start: 20030904
  13. AVANDIA [Concomitant]
     Route: 048
     Dates: start: 20040724
  14. AMBIEN [Concomitant]
     Indication: INSOMNIA
     Route: 048
     Dates: start: 20000224
  15. PROPRANOLOL [Concomitant]
     Route: 048
     Dates: start: 20000224
  16. ZOLOFT [Concomitant]
     Route: 048
     Dates: start: 20000224
  17. HALDOL [Concomitant]
     Indication: AGITATION
     Route: 048
     Dates: start: 19991205
  18. TRAZODONE [Concomitant]
     Indication: INSOMNIA
     Route: 048
     Dates: start: 19991209
  19. COGENTIN [Concomitant]
     Route: 048
     Dates: start: 19991210

REACTIONS (1)
  - DIABETES MELLITUS [None]
